FAERS Safety Report 24404357 (Version 1)
Quarter: 2024Q4

REPORT INFORMATION
  Report Type: Other
  Country: US (occurrence: US)
  Receive Date: 20241007
  Receipt Date: 20241007
  Transmission Date: 20250115
  Serious: Yes (Death)
  Sender: TAMARANG PHARMACEUTICALS
  Company Number: US-Tamarang, S.A.-2162567

PATIENT
  Age: 47 Year
  Sex: Male

DRUGS (6)
  1. ROCURONIUM BROMIDE [Suspect]
     Active Substance: ROCURONIUM BROMIDE
  2. MIDAZOLAM [Concomitant]
     Active Substance: MIDAZOLAM
  3. CEFAZOLIN [Interacting]
     Active Substance: CEFAZOLIN
  4. AMIODARONE [Interacting]
     Active Substance: AMIODARONE
  5. LIDOCAINE [Interacting]
     Active Substance: LIDOCAINE
  6. DANTROLENE. [Interacting]
     Active Substance: DANTROLENE SODIUM

REACTIONS (2)
  - Hyperthermia malignant [Fatal]
  - Death [Fatal]
